FAERS Safety Report 5958527-7 (Version None)
Quarter: 2008Q4

REPORT INFORMATION
  Report Type: 
  Country: None (occurrence: None)
  Receive Date: 20081119
  Receipt Date: 20081114
  Transmission Date: 20090506
  Serious: Yes (Hospitalization)
  Sender: FDA-Public Use
  Company Number: PHHY2008IT28434

PATIENT
  Sex: Female

DRUGS (9)
  1. METHERGINE [Suspect]
     Indication: CAESAREAN SECTION
     Dosage: 0.6 MG
     Route: 030
     Dates: start: 20080721
  2. METHERGINE [Suspect]
  3. ATROPINE SULFATE [Suspect]
     Dosage: UNK
     Dates: start: 20080721
  4. SYNTOCINON [Suspect]
     Dosage: 15 IU
     Dates: start: 20080721
  5. DEXTROSE 5% [Suspect]
     Dosage: 1L
     Dates: start: 20080721
  6. SODIUM CHLORIDE 0.9% [Suspect]
     Dosage: 2L
     Dates: start: 20080721
  7. BENTELAN [Suspect]
     Indication: ANAESTHESIA
     Dosage: 4 MG
     Dates: start: 20080721
  8. BUPIVACAINE [Suspect]
     Dosage: 1 POSOLOGIC UNIT
     Dates: start: 20080721
  9. EMAGEL [Suspect]
     Dosage: 2L
     Dates: start: 20080721

REACTIONS (1)
  - DISSEMINATED INTRAVASCULAR COAGULATION [None]
